FAERS Safety Report 14527612 (Version 4)
Quarter: 2018Q4

REPORT INFORMATION
  Report Type: Spontaneous
  Country: US (occurrence: US)
  Receive Date: 20180213
  Receipt Date: 20181217
  Transmission Date: 20190204
  Serious: Yes (Hospitalization, Other)
  Sender: FDA-Public Use
  Company Number: US-PFIZER INC-2018061971

PATIENT
  Age: 58 Year
  Sex: Female
  Weight: 59 kg

DRUGS (2)
  1. IBRANCE [Suspect]
     Active Substance: PALBOCICLIB
     Indication: BREAST CANCER METASTATIC
     Dosage: 125 MG, CYCLIC (DAYS 1-21 Q28 DAYS)
     Route: 048
     Dates: start: 201801
  2. IBRANCE [Suspect]
     Active Substance: PALBOCICLIB
     Indication: NEOPLASM MALIGNANT
     Dosage: 125 MG, CYCLIC (1 DAILY FOR 21 DAYS AND 7 OFF)
     Route: 048
     Dates: start: 20180913

REACTIONS (13)
  - Pyrexia [Recovered/Resolved]
  - Alopecia [Unknown]
  - Vision blurred [Unknown]
  - Full blood count decreased [Unknown]
  - Swelling face [Recovered/Resolved]
  - Herpes zoster [Unknown]
  - Fatigue [Unknown]
  - Nausea [Unknown]
  - Syncope [Unknown]
  - Poor quality sleep [Unknown]
  - Insomnia [Unknown]
  - Myalgia [Not Recovered/Not Resolved]
  - Bone pain [Not Recovered/Not Resolved]

NARRATIVE: CASE EVENT DATE: 2018
